FAERS Safety Report 13988457 (Version 4)
Quarter: 2017Q4

REPORT INFORMATION
  Report Type: Spontaneous
  Country: JP (occurrence: JP)
  Receive Date: 20170919
  Receipt Date: 20171009
  Transmission Date: 20180321
  Serious: Yes (Hospitalization)
  Sender: FDA-Public Use
  Company Number: JP-PFIZER INC-2017402833

PATIENT
  Age: 2 Year
  Sex: Male

DRUGS (3)
  1. FOSPHENYTOIN SODIUM. [Suspect]
     Active Substance: FOSPHENYTOIN SODIUM
     Indication: GENERALISED TONIC-CLONIC SEIZURE
     Dosage: UNK
     Route: 042
  2. DIAZEPAM. [Concomitant]
     Active Substance: DIAZEPAM
     Indication: SEIZURE
     Dosage: UNK
     Route: 042
  3. MIDAZOLAM [Concomitant]
     Active Substance: MIDAZOLAM HYDROCHLORIDE
     Indication: SEDATION
     Dosage: 4.8 MG/KG (0.2 MG/KG, 1 IN 1 HR)
     Route: 041

REACTIONS (5)
  - Acute respiratory distress syndrome [Unknown]
  - Encephalopathy [Unknown]
  - Seizure [Unknown]
  - Condition aggravated [Unknown]
  - Altered state of consciousness [Unknown]
